FAERS Safety Report 4375908-6 (Version None)
Quarter: 2004Q2

REPORT INFORMATION
  Report Type: 
  Country: None (occurrence: None)
  Receive Date: 20040607
  Receipt Date: 20040526
  Transmission Date: 20050107
  Serious: Yes (Hospitalization)
  Sender: FDA-Public Use
  Company Number: 200411822GDS

PATIENT
  Age: 63 Year
  Sex: Male

DRUGS (4)
  1. ASPIRIN [Suspect]
     Indication: CARDIAC FAILURE
     Dosage: 100 MG, QD, ORAL
     Route: 048
     Dates: start: 20040510, end: 20040517
  2. CARVEDILOL [Suspect]
     Indication: CARDIAC FAILURE
     Dosage: 6.25 MG, QD, ORAL
     Route: 048
     Dates: start: 20040510, end: 20040519
  3. OMEPRAZOLE [Concomitant]
  4. RAMIPRIL [Concomitant]

REACTIONS (2)
  - LEUKOPENIA [None]
  - THROMBOCYTOPENIA [None]
